FAERS Safety Report 9350666 (Version 2)
Quarter: 2013Q3

REPORT INFORMATION
  Report Type: Report from Study
  Country: FR (occurrence: FR)
  Receive Date: 20130617
  Receipt Date: 20130923
  Transmission Date: 20140515
  Serious: Yes (Other)
  Sender: FDA-Public Use
  Company Number: PHHY2013FR033447

PATIENT
  Age: 82 Year
  Sex: Female

DRUGS (11)
  1. ACLASTA/ZOLEDRONATE [Suspect]
     Indication: OSTEOPOROSIS POSTMENOPAUSAL
     Dosage: UNK
     Route: 042
     Dates: start: 201111
  2. DIAMICRON LM [Concomitant]
     Dosage: UNK
     Dates: start: 1990
  3. STAGID [Concomitant]
     Dosage: UNK
     Dates: start: 1990
  4. COAPROVEL [Concomitant]
     Dosage: UNK
     Dates: start: 1990
  5. KARDEGIC [Concomitant]
     Dosage: UNK
     Dates: start: 1990
  6. CYMBALTA [Concomitant]
     Dosage: UNK
     Dates: start: 2010
  7. DIOSMIN [Concomitant]
     Dosage: UNK
  8. PARIET [Concomitant]
     Dosage: UNK
  9. IXPRIM [Concomitant]
     Dosage: UNK
     Dates: start: 2011
  10. INSULIN [Concomitant]
     Dosage: UNK
     Dates: start: 2012
  11. COUMADINE [Concomitant]
     Dosage: UNK
     Dates: start: 2012

REACTIONS (4)
  - Arrhythmia [Unknown]
  - Palpitations [Unknown]
  - Fatigue [Unknown]
  - Transient ischaemic attack [Unknown]
